FAERS Safety Report 4946390-2 (Version None)
Quarter: 2006Q1

REPORT INFORMATION
  Report Type: 
  Country: None (occurrence: None)
  Receive Date: 20060317
  Receipt Date: 20040603
  Transmission Date: 20060701
  Serious: Yes (Disabling)
  Sender: FDA-Public Use
  Company Number: 2004UW11546

PATIENT
  Age: 76 Year
  Sex: Female
  Weight: 80.5 kg

DRUGS (3)
  1. CRESTOR [Suspect]
     Indication: BLOOD CHOLESTEROL INCREASED
     Route: 048
     Dates: start: 20030917, end: 20040729
  2. CRESTOR [Suspect]
     Indication: HYPERLIPIDAEMIA
     Route: 048
     Dates: start: 20030917, end: 20040729
  3. DETROL LA [Concomitant]
     Indication: INCONTINENCE
     Route: 048

REACTIONS (7)
  - ARTHRITIS [None]
  - BACK PAIN [None]
  - DIFFICULTY IN WALKING [None]
  - MUSCLE INJURY [None]
  - MUSCULAR WEAKNESS [None]
  - MYALGIA [None]
  - MYOSITIS [None]
